FAERS Safety Report 8489022-1 (Version None)
Quarter: 2012Q2

REPORT INFORMATION
  Report Type: 
  Country: None (occurrence: None)
  Receive Date: 20120626
  Receipt Date: 20120614
  Transmission Date: 20120825
  Serious: Yes (Hospitalization)
  Sender: FDA-Public Use
  Company Number: 2012SP032090

PATIENT
  Age: 64 Year
  Sex: Female

DRUGS (4)
  1. PEG-INTRON [Suspect]
     Indication: HEPATITIS C
     Dosage: 120 MG
     Dates: start: 20120101
  2. REBETOL [Suspect]
     Indication: HEPATITIS C
     Dosage: 1200 MG; 800 MG;
  3. BISOPROLOL FUMARATE [Concomitant]
  4. VICTRELIS [Suspect]
     Indication: HEPATITIS C
     Dates: start: 20120101

REACTIONS (4)
  - ANAEMIA [None]
  - HYPERTENSION [None]
  - PULMONARY HYPERTENSION [None]
  - RIGHT VENTRICULAR FAILURE [None]
